FAERS Safety Report 4777949-3 (Version None)
Quarter: 2005Q3

REPORT INFORMATION
  Report Type: 
  Country: None (occurrence: None)
  Receive Date: 20050921
  Receipt Date: 20050905
  Transmission Date: 20060218
  Serious: Yes (Hospitalization)
  Sender: FDA-Public Use
  Company Number: FR_050907066

PATIENT
  Age: 67 Year
  Sex: Male
  Weight: 55 kg

DRUGS (4)
  1. ZYPREXA [Suspect]
     Indication: SCHIZOPHRENIA
     Dosage: 10 MG DAY
     Dates: start: 20050323, end: 20050616
  2. NOZINAN (LEVOMEPROMAZINE HYDROCHLORIDE) [Concomitant]
  3. SENTRALINE [Concomitant]
  4. HALDOL [Concomitant]

REACTIONS (4)
  - HAEMOGLOBIN DECREASED [None]
  - LEUKOPENIA [None]
  - LYMPHOPENIA [None]
  - NEUTROPENIA [None]
